FAERS Safety Report 6600087-1 (Version None)
Quarter: 2010Q1

REPORT INFORMATION
  Report Type: 
  Country: None (occurrence: None)
  Receive Date: 20100224
  Receipt Date: 20100212
  Transmission Date: 20100710
  Serious: Yes (Other)
  Sender: FDA-Public Use
  Company Number: PHEH2010US02509

PATIENT

DRUGS (1)
  1. AFINITOR [Suspect]

REACTIONS (3)
  - ABDOMINAL HERNIA REPAIR [None]
  - HAEMORRHAGE INTRACRANIAL [None]
  - METASTASES TO CENTRAL NERVOUS SYSTEM [None]
